FAERS Safety Report 25789314 (Version 2)
Quarter: 2025Q3

REPORT INFORMATION
  Report Type: Report from Study
  Country: CA (occurrence: CA)
  Receive Date: 20250911
  Receipt Date: 20250924
  Transmission Date: 20251020
  Serious: Yes (Hospitalization, Other)
  Sender: TAKEDA
  Company Number: CA-TAKEDA-2025TUS007383

PATIENT
  Age: 45 Year
  Sex: Male

DRUGS (8)
  1. VEDOLIZUMAB [Suspect]
     Active Substance: VEDOLIZUMAB
     Indication: Colitis ulcerative
  2. VEDOLIZUMAB [Suspect]
     Active Substance: VEDOLIZUMAB
  3. VEDOLIZUMAB [Suspect]
     Active Substance: VEDOLIZUMAB
  4. VEDOLIZUMAB [Suspect]
     Active Substance: VEDOLIZUMAB
  5. VEDOLIZUMAB [Suspect]
     Active Substance: VEDOLIZUMAB
     Dosage: 300 MILLIGRAM, Q4WEEKS
     Dates: start: 20250919
  6. VALSARTAN [Concomitant]
     Active Substance: VALSARTAN
  7. TRINTELLIX [Concomitant]
     Active Substance: VORTIOXETINE HYDROBROMIDE
  8. QUETIAPINE [Concomitant]
     Active Substance: QUETIAPINE

REACTIONS (8)
  - Colitis ulcerative [Recovering/Resolving]
  - Gastrointestinal oedema [Recovering/Resolving]
  - Frequent bowel movements [Unknown]
  - Faeces soft [Not Recovered/Not Resolved]
  - Diarrhoea [Not Recovered/Not Resolved]
  - Off label use [Unknown]
  - Aphthous ulcer [Unknown]
  - Dyspepsia [Unknown]

NARRATIVE: CASE EVENT DATE: 20250919
